FAERS Safety Report 6760526-2 (Version None)
Quarter: 2010Q2

REPORT INFORMATION
  Report Type: 
  Country: None (occurrence: None)
  Receive Date: 20100607
  Receipt Date: 20100607
  Transmission Date: 20101027
  Serious: Yes (Other)
  Sender: FDA-Public Use
  Company Number: None

PATIENT
  Age: 56 Year
  Sex: Male

DRUGS (2)
  1. DEPAKOTE [Suspect]
     Indication: BIPOLAR DISORDER
     Dosage: 750MG AM AND 1000 MG HS ORAL
     Route: 048
     Dates: start: 20100521, end: 20100602
  2. ZYPREXA [Concomitant]

REACTIONS (4)
  - DIZZINESS [None]
  - MOTION SICKNESS [None]
  - NAUSEA [None]
  - PRODUCT SUBSTITUTION ISSUE [None]
